FAERS Safety Report 10491899 (Version 1)
Quarter: 2014Q4

REPORT INFORMATION
  Report Type: Spontaneous
  Country: US (occurrence: US)
  Receive Date: 20141002
  Receipt Date: 20141002
  Transmission Date: 20150528
  Serious: No
  Sender: FDA-Public Use
  Company Number: US-GLAXOSMITHKLINE-A1061697A

PATIENT
  Age: 44 Year
  Sex: Female

DRUGS (26)
  1. KOMBIGLYZE XR [Concomitant]
     Active Substance: METFORMIN HYDROCHLORIDE\SAXAGLIPTIN HYDROCHLORIDE
  2. VOLTAREN [Concomitant]
     Active Substance: DICLOFENAC SODIUM
  3. KLOR-CON [Concomitant]
     Active Substance: POTASSIUM CHLORIDE
  4. PREDNISONE. [Concomitant]
     Active Substance: PREDNISONE
  5. DIFLUCAN [Concomitant]
     Active Substance: FLUCONAZOLE
  6. ADVAIR HFA [Suspect]
     Active Substance: FLUTICASONE PROPIONATE\SALMETEROL XINAFOATE
     Indication: PNEUMONIA
     Dosage: 1PUFF TWICE PER DAY
     Dates: start: 20140129
  7. TUSSIONEX PENNKINETIC [Concomitant]
     Active Substance: CHLORPHENIRAMINE\HYDROCODONE
  8. XYLOCAINE 2% [Concomitant]
  9. SEPTRA [Concomitant]
     Active Substance: SULFAMETHOXAZOLE\TRIMETHOPRIM
  10. TESSALON [Concomitant]
     Active Substance: BENZONATATE
  11. CLINDAMYCIN [Concomitant]
     Active Substance: CLINDAMYCIN\CLINDAMYCIN PHOSPHATE
  12. HYDROXYZINE [Concomitant]
     Active Substance: HYDROXYZINE\HYDROXYZINE HYDROCHLORIDE
  13. LISINOPRIL. [Concomitant]
     Active Substance: LISINOPRIL
  14. VITAMIN D [Concomitant]
     Active Substance: CHOLECALCIFEROL
  15. WELLBUTRIN [Concomitant]
     Active Substance: BUPROPION HYDROCHLORIDE
  16. NUCYNTA [Concomitant]
     Active Substance: TAPENTADOL HYDROCHLORIDE
  17. SINGULAIR [Concomitant]
     Active Substance: MONTELUKAST SODIUM
  18. ALBUTEROL NEBULIZER [Concomitant]
     Active Substance: ALBUTEROL
  19. AMBIEN [Concomitant]
     Active Substance: ZOLPIDEM TARTRATE
  20. PROMETHAZINE [Concomitant]
     Active Substance: PROMETHAZINE\PROMETHAZINE HYDROCHLORIDE
  21. FUROSEMIDE. [Concomitant]
     Active Substance: FUROSEMIDE
  22. NEURONTIN [Concomitant]
     Active Substance: GABAPENTIN
  23. AMITRIPTYLINE [Concomitant]
     Active Substance: AMITRIPTYLINE
  24. OMEPRAZOLE. [Concomitant]
     Active Substance: OMEPRAZOLE
  25. ELMIRON [Concomitant]
     Active Substance: PENTOSAN POLYSULFATE SODIUM
  26. LEVAQUIN [Concomitant]
     Active Substance: LEVOFLOXACIN

REACTIONS (1)
  - Dysgeusia [Unknown]

NARRATIVE: CASE EVENT DATE: 201401
